FAERS Safety Report 6920812-X (Version None)
Quarter: 2010Q3

REPORT INFORMATION
  Report Type: 
  Country: None (occurrence: None)
  Receive Date: 20100812
  Receipt Date: 20100809
  Transmission Date: 20110219
  Serious: Yes (Life-Threatening)
  Sender: FDA-Public Use
  Company Number: US-ROXANE LABORATORIES, INC.-2010-RO-01001RO

PATIENT

DRUGS (3)
  1. DEXAMETHASONE [Suspect]
     Indication: FOETAL CARDIAC DISORDER
     Route: 064
  2. TERBUTALINE SULFATE [Suspect]
     Indication: PERICARDIAL EFFUSION
     Route: 064
  3. TERBUTALINE SULFATE [Suspect]
     Indication: PLEURAL EFFUSION

REACTIONS (2)
  - DRUG INEFFECTIVE [None]
  - FOETAL GROWTH RESTRICTION [None]
